FAERS Safety Report 6419332-0 (Version None)
Quarter: 2009Q4

REPORT INFORMATION
  Report Type: 
  Country: None (occurrence: None)
  Receive Date: 20091029
  Receipt Date: 20091023
  Transmission Date: 20100525
  Serious: Yes (Hospitalization)
  Sender: FDA-Public Use
  Company Number: US-ELI_LILLY_AND_COMPANY-US200910006039

PATIENT
  Sex: Female

DRUGS (2)
  1. HUMALOG [Suspect]
  2. LANTUS [Concomitant]

REACTIONS (5)
  - BLOOD GLUCOSE INCREASED [None]
  - CONFUSIONAL STATE [None]
  - DRUG HYPERSENSITIVITY [None]
  - MEMORY IMPAIRMENT [None]
  - UNRESPONSIVE TO STIMULI [None]
